FAERS Safety Report 6706552-0 (Version None)
Quarter: 2010Q2

REPORT INFORMATION
  Report Type: 
  Country: None (occurrence: None)
  Receive Date: 20100503
  Receipt Date: 20100423
  Transmission Date: 20101027
  Serious: Yes (Hospitalization)
  Sender: FDA-Public Use
  Company Number: AU-ASTRAZENECA-2010SE18146

PATIENT
  Age: 19 Year
  Sex: Male

DRUGS (1)
  1. QUETIAPINE [Suspect]
     Indication: PSYCHOTIC DISORDER
     Dosage: TITRATED TO 800 MG/DAY
     Route: 048

REACTIONS (5)
  - DRUG ABUSE [None]
  - DRUG DEPENDENCE [None]
  - DRUG WITHDRAWAL SYNDROME [None]
  - FACTITIOUS DISORDER [None]
  - INCORRECT ROUTE OF DRUG ADMINISTRATION [None]
